FAERS Safety Report 6962446 (Version 3)
Quarter: 2012Q4

REPORT INFORMATION
  Report Type: 
  Country: US (occurrence: None)
  Receive Date: 20090327
  Receipt Date: 20120912
  Transmission Date: 20130627
  Serious: Yes (Other)
  Sender: FDA-Public Use
  Company Number: 2009AP001094

PATIENT
  Age: 70 Year
  Sex: Female

DRUGS (2)
  1. AMIODARONE HYDROCHLORIDE [Suspect]
     Dosage: 200 MG; QD; 600 MG; QD
  2. AMIODARONE HYDROCHLORIDE [Suspect]

REACTIONS (5)
  - TOXICITY TO VARIOUS AGENTS [None]
  - PLEURAL EFFUSION [None]
  - PLEURITIC PAIN [None]
  - HYPOXIA [None]
  - INTERSTITIAL LUNG DISEASE [None]
